FAERS Safety Report 22526313 (Version 1)
Quarter: 2023Q2

REPORT INFORMATION
  Report Type: Spontaneous
  Country: US (occurrence: US)
  Receive Date: 20230606
  Receipt Date: 20230606
  Transmission Date: 20230722
  Serious: No
  Sender: FDA-Public Use
  Company Number: US-MAYNE PHARMA-2023MYN000429

PATIENT

DRUGS (1)
  1. DORYX MPC [Suspect]
     Active Substance: DOXYCYCLINE HYCLATE
     Indication: Acne
     Dosage: 60 MG, BID (2 TABLETS)
     Route: 048

REACTIONS (2)
  - Pain in extremity [Recovered/Resolved]
  - Periorbital swelling [Recovered/Resolved]
